FAERS Safety Report 8517497-8 (Version None)
Quarter: 2012Q3

REPORT INFORMATION
  Report Type: 
  Country: None (occurrence: None)
  Receive Date: 20120718
  Receipt Date: 20120712
  Transmission Date: 20120928
  Serious: Yes (Hospitalization)
  Sender: FDA-Public Use
  Company Number: GB-ROCHE-1088456

PATIENT
  Sex: Female
  Weight: 99.789 kg

DRUGS (6)
  1. ASPIRIN [Concomitant]
     Dates: start: 20030101
  2. LOSARTAN POTASSIUM [Concomitant]
     Dates: start: 20030101
  3. AMLODIPINE [Concomitant]
     Dates: start: 20030101
  4. SIMVASTATIN [Concomitant]
     Dates: start: 20030101
  5. RANIBIZUMAB [Suspect]
     Indication: PRODUCT USED FOR UNKNOWN INDICATION
     Dosage: LAST DOSE ADMINISTERED 08/JUN/2012
     Route: 050
     Dates: start: 20081206
  6. NITROGLYCERIN [Concomitant]
     Dates: start: 20030101

REACTIONS (1)
  - ANGINA UNSTABLE [None]
